FAERS Safety Report 21461866 (Version 1)
Quarter: 2022Q4

REPORT INFORMATION
  Report Type: Spontaneous
  Country: US (occurrence: US)
  Receive Date: 20221015
  Receipt Date: 20221015
  Transmission Date: 20230112
  Serious: No
  Sender: FDA-Public Use
  Company Number: US-ABBVIE-4142888

PATIENT
  Sex: Female

DRUGS (1)
  1. HUMIRA [Suspect]
     Active Substance: ADALIMUMAB
     Indication: Product used for unknown indication
     Dosage: STRENGTH- 40 MILLIGRAM
     Route: 058

REACTIONS (4)
  - Injection site haemorrhage [Unknown]
  - Device issue [Unknown]
  - Medication error [Unknown]
  - Illness [Unknown]
